FAERS Safety Report 25093105 (Version 1)
Quarter: 2025Q1

REPORT INFORMATION
  Report Type: Report from Study
  Country: US (occurrence: US)
  Receive Date: 20250319
  Receipt Date: 20250319
  Transmission Date: 20250409
  Serious: Yes (Death, Other)
  Sender: ACADIA PHARMACEUTICALS
  Company Number: US-ACADIA PHARMACEUTICALS INC.-ACA-2025-PIM-003065

PATIENT
  Sex: Male

DRUGS (8)
  1. NUPLAZID [Suspect]
     Active Substance: PIMAVANSERIN TARTRATE
     Indication: Parkinson^s disease
     Dosage: 34 MILLIGRAM, QD
     Route: 048
     Dates: start: 20210715
  2. AMOXICILLIN [Concomitant]
     Active Substance: AMOXICILLIN
  3. ARICEPT [Concomitant]
     Active Substance: DONEPEZIL HYDROCHLORIDE
  4. CARBIDOPA LEVODOPA [Concomitant]
     Active Substance: CARBIDOPA\LEVODOPA
  5. KLONOPIN [Concomitant]
     Active Substance: CLONAZEPAM
  6. LAMOTRIGINE [Concomitant]
     Active Substance: LAMOTRIGINE
  7. MIDODRINE [Concomitant]
     Active Substance: MIDODRINE
  8. RASAGILINE [Concomitant]
     Active Substance: RASAGILINE

REACTIONS (1)
  - Death [Fatal]
